FAERS Safety Report 16486075 (Version 2)
Quarter: 2019Q3

REPORT INFORMATION
  Report Type: Report from Study
  Country: None (occurrence: CH)
  Receive Date: 20190627
  Receipt Date: 20190705
  Transmission Date: 20191004
  Serious: Yes (Hospitalization)
  Sender: FDA-Public Use
  Company Number: CH-ABBVIE-19K-151-2834166-00

PATIENT
  Sex: Female

DRUGS (5)
  1. DUODOPA [Suspect]
     Active Substance: CARBIDOPA\LEVODOPA
     Route: 050
  2. DUODOPA [Suspect]
     Active Substance: CARBIDOPA\LEVODOPA
     Indication: PARKINSON^S DISEASE
     Dosage: 1 CASSETTE IN 24 H
     Route: 050
     Dates: start: 20170321, end: 20190212
  3. DUODOPA [Suspect]
     Active Substance: CARBIDOPA\LEVODOPA
     Dosage: MD: 3 ML, CD: 3.1 ML/H, CN: 1.4 ML/H, ED: 0.8 ML
     Route: 050
     Dates: start: 20190212, end: 2019
  4. DUODOPA [Suspect]
     Active Substance: CARBIDOPA\LEVODOPA
     Dosage: MD: 3 ML, CD: 3.1 ML/H, CNT: 1.4 ML/H, ED: 0.8 ML
     Route: 050
     Dates: start: 2019, end: 20190702
  5. DUODOPA [Suspect]
     Active Substance: CARBIDOPA\LEVODOPA
     Dosage: MD: 3 ML, CD: 3.4 ML/H, CN: 1.4 ML/H, ED: 1 ML
     Route: 050
     Dates: start: 20190702

REACTIONS (4)
  - Psychotic disorder [Not Recovered/Not Resolved]
  - Intentional product misuse [Unknown]
  - Device dislocation [Unknown]
  - Off label use [Unknown]
